FAERS Safety Report 12541534 (Version 2)
Quarter: 2016Q3

REPORT INFORMATION
  Report Type: Spontaneous
  Country: US (occurrence: US)
  Receive Date: 20160708
  Receipt Date: 20160712
  Transmission Date: 20161109
  Serious: No
  Sender: FDA-Public Use
  Company Number: US-TEVA-575680USA

PATIENT
  Sex: Male
  Weight: 95.34 kg

DRUGS (4)
  1. HYDROCODONE [Concomitant]
     Active Substance: HYDROCODONE
     Indication: PAIN
  2. PROVIGIL [Suspect]
     Active Substance: MODAFINIL
     Indication: NARCOLEPSY
     Route: 065
     Dates: start: 1996
  3. PROVIGIL [Suspect]
     Active Substance: MODAFINIL
     Indication: ASTHENIA
  4. LEXAPRO [Concomitant]
     Active Substance: ESCITALOPRAM OXALATE
     Indication: DEPRESSION

REACTIONS (3)
  - Therapeutic response unexpected [Unknown]
  - Product substitution issue [Unknown]
  - Adverse event [Unknown]
